FAERS Safety Report 6779501-7 (Version None)
Quarter: 2010Q2

REPORT INFORMATION
  Report Type: 
  Country: None (occurrence: None)
  Receive Date: 20100618
  Receipt Date: 20100609
  Transmission Date: 20101027
  Serious: Yes (Other)
  Sender: FDA-Public Use
  Company Number: US-ELI_LILLY_AND_COMPANY-US201006002566

PATIENT
  Sex: Male
  Weight: 90.703 kg

DRUGS (6)
  1. BYETTA [Suspect]
     Indication: TYPE 2 DIABETES MELLITUS
     Route: 058
  2. SYMLIN [Concomitant]
     Indication: TYPE 2 DIABETES MELLITUS
     Dosage: 60 UG, 2/D
     Route: 058
     Dates: start: 20100101, end: 20100101
  3. SYMLIN [Concomitant]
     Dosage: 120 UG, 2/D
     Route: 058
     Dates: start: 20100101, end: 20100609
  4. NOVOLOG [Concomitant]
     Indication: TYPE 2 DIABETES MELLITUS
     Dosage: 60 U, 2/D
     Dates: end: 20100101
  5. SIMVASTATIN [Concomitant]
     Indication: BLOOD CHOLESTEROL
     Dosage: 40 MG, DAILY (1/D)
  6. TRIAMTERENE AND HYDROCHLOROTHIAZIDE [Concomitant]
     Indication: PROPHYLAXIS

REACTIONS (9)
  - ASTHENIA [None]
  - BLOOD GLUCOSE DECREASED [None]
  - HYPERHIDROSIS [None]
  - NAUSEA [None]
  - OFF LABEL USE [None]
  - PAIN [None]
  - PROSTATE CANCER [None]
  - TREMOR [None]
  - WEIGHT DECREASED [None]
